FAERS Safety Report 8860039 (Version 3)
Quarter: 2013Q2

REPORT INFORMATION
  Report Type: Spontaneous
  Country: US (occurrence: US)
  Receive Date: 20121025
  Receipt Date: 20130415
  Transmission Date: 20140414
  Serious: Yes (Other)
  Sender: FDA-Public Use
  Company Number: US-TEVA-357390USA

PATIENT
  Sex: Male

DRUGS (5)
  1. METHOTREXATE [Suspect]
     Indication: RHEUMATOID ARTHRITIS
     Dosage: STARTED TAKING MED 3 YEARS AGO
     Dates: start: 2010
  2. ASPIRIN [Concomitant]
  3. AMOXICILLIN [Concomitant]
  4. CLOTRIMAZOLE [Concomitant]
  5. DARVOCET [Concomitant]
     Indication: PAIN

REACTIONS (17)
  - Gouty arthritis [Unknown]
  - Mouth ulceration [Unknown]
  - Toxicity to various agents [Unknown]
  - Gingival bleeding [Unknown]
  - Infection [Unknown]
  - Mouth ulceration [Unknown]
  - Scab [Unknown]
  - Loose tooth [Unknown]
  - Mucous membrane disorder [Unknown]
  - Dehydration [Unknown]
  - Weight decreased [Unknown]
  - Gout [Unknown]
  - Lip ulceration [Unknown]
  - Scar [Unknown]
  - Tooth disorder [Unknown]
  - Hypophagia [Unknown]
  - Mucosal inflammation [Unknown]
